FAERS Safety Report 25655422 (Version 2)
Quarter: 2025Q3

REPORT INFORMATION
  Report Type: Report from Study
  Country: US (occurrence: US)
  Receive Date: 20250807
  Receipt Date: 20250907
  Transmission Date: 20251020
  Serious: Yes (Other)
  Sender: UCB
  Company Number: US-UCBSA-2025045555

PATIENT
  Age: 25 Year
  Sex: Male
  Weight: 67.6 kg

DRUGS (7)
  1. FINTEPLA [Suspect]
     Active Substance: FENFLURAMINE
     Indication: Lennox-Gastaut syndrome
     Dosage: 5.9 MILLILITER, 2X/DAY (BID)
     Dates: start: 20220924
  2. FINTEPLA [Suspect]
     Active Substance: FENFLURAMINE
  3. FELBAMATE [Concomitant]
     Active Substance: FELBAMATE
     Indication: Seizure
  4. DEPAKOTE [Concomitant]
     Active Substance: DIVALPROEX SODIUM
     Indication: Seizure
  5. DEPAKOTE [Concomitant]
     Active Substance: DIVALPROEX SODIUM
  6. RUFINAMIDE [Concomitant]
     Active Substance: RUFINAMIDE
     Indication: Product used for unknown indication
  7. MELATONIN [Concomitant]
     Active Substance: MELATONIN
     Indication: Product used for unknown indication

REACTIONS (5)
  - Atonic seizures [Recovering/Resolving]
  - Seizure [Recovering/Resolving]
  - Fall [Unknown]
  - Skin laceration [Recovered/Resolved]
  - Traumatic haemorrhage [Recovered/Resolved]

NARRATIVE: CASE EVENT DATE: 20250713
